FAERS Safety Report 7161705-5 (Version None)
Quarter: 2010Q4

REPORT INFORMATION
  Report Type: 
  Country: None (occurrence: None)
  Receive Date: 20101215
  Receipt Date: 20101208
  Transmission Date: 20110411
  Serious: Yes (Hospitalization, Other)
  Sender: FDA-Public Use
  Company Number: US-AMGEN LTD.-QUU445284

PATIENT

DRUGS (27)
  1. NPLATE [Suspect]
     Indication: THROMBOCYTOPENIA
     Dosage: 1 A?G/KG, ONE TIME DOSE
     Route: 058
     Dates: start: 20090929, end: 20090929
  2. NPLATE [Suspect]
     Indication: IDIOPATHIC THROMBOCYTOPENIC PURPURA
  3. ASCORBIC ACID [Concomitant]
     Indication: PRODUCT USED FOR UNKNOWN INDICATION
     Dosage: 500 MG, QD
     Route: 048
  4. ZYRTEC [Concomitant]
     Indication: PRODUCT USED FOR UNKNOWN INDICATION
     Dosage: 10 MG, QD
     Route: 048
  5. PLACEBO [Concomitant]
     Indication: PRODUCT USED FOR UNKNOWN INDICATION
     Dosage: 40 MG, QWK
     Route: 048
  6. DEXTROSE [Concomitant]
     Indication: PRODUCT USED FOR UNKNOWN INDICATION
     Dosage: 3 ML, QWK
     Route: 042
  7. NEXIUM [Concomitant]
     Indication: PRODUCT USED FOR UNKNOWN INDICATION
     Dosage: 40 MG, QD
     Route: 048
  8. PROVERA [Concomitant]
     Indication: PRODUCT USED FOR UNKNOWN INDICATION
     Dosage: 10 MG, QD
     Route: 048
  9. MULTIVITAMIN                       /00097801/ [Concomitant]
     Indication: PRODUCT USED FOR UNKNOWN INDICATION
     Dosage: 1 DF, QD
  10. PREDNISONE [Concomitant]
     Indication: PRODUCT USED FOR UNKNOWN INDICATION
     Dosage: 20 MG, BID
     Route: 048
  11. BACTRIM [Concomitant]
     Indication: SINUSITIS
     Dosage: 1 DF, 2 TIMES/WK
     Route: 048
  12. TACROLIMUS [Concomitant]
     Indication: PRODUCT USED FOR UNKNOWN INDICATION
     Dosage: 2 MG, BID
     Route: 048
  13. DESYREL [Concomitant]
     Indication: PRODUCT USED FOR UNKNOWN INDICATION
     Dosage: 100 MG, QD
     Route: 048
  14. VALTREX [Concomitant]
     Indication: PRODUCT USED FOR UNKNOWN INDICATION
     Dosage: 500 MG, UNK
  15. TYLENOL (CAPLET) [Concomitant]
     Indication: PRODUCT USED FOR UNKNOWN INDICATION
     Dosage: 650 MG, PRN
     Route: 048
  16. DILAUDID [Concomitant]
     Dosage: 2 MG, PRN
     Route: 048
  17. ARA-C [Concomitant]
     Indication: PRODUCT USED FOR UNKNOWN INDICATION
  18. DECITABINE [Concomitant]
     Indication: PRODUCT USED FOR UNKNOWN INDICATION
  19. ERGOCALCIFEROL [Concomitant]
     Indication: PRODUCT USED FOR UNKNOWN INDICATION
     Dosage: 50000 UNIT, QWK
  20. HYDROXYZINE [Concomitant]
     Indication: PRODUCT USED FOR UNKNOWN INDICATION
  21. MAGIC  MOUTHWASH [Concomitant]
     Indication: STOMATITIS
  22. MEDROXYPROGESTERONE [Concomitant]
     Indication: PRODUCT USED FOR UNKNOWN INDICATION
     Dosage: 10 MG, QD
  23. METOPROLOL [Concomitant]
     Indication: TACHYCARDIA
     Dosage: 50 MG, UNK
  24. PRAVASTATIN [Concomitant]
     Indication: PRODUCT USED FOR UNKNOWN INDICATION
     Dosage: 40 MG, UNK
  25. PREDNISONE [Concomitant]
     Dosage: 5 MG, QD
  26. TRAZODONE [Concomitant]
     Indication: PRODUCT USED FOR UNKNOWN INDICATION
     Dosage: 100 MG, QD
  27. VALTREX [Concomitant]
     Dosage: 500 MG, QD

REACTIONS (34)
  - ANXIETY [None]
  - BLOOD URIC ACID INCREASED [None]
  - BONE MARROW DISORDER [None]
  - BONE MARROW TRANSPLANT [None]
  - CATARACT [None]
  - CEREBRAL HAEMORRHAGE [None]
  - DERMATITIS [None]
  - DIARRHOEA [None]
  - DRUG ERUPTION [None]
  - DYSPNOEA [None]
  - EMBOLISM ARTERIAL [None]
  - FATIGUE [None]
  - GRAFT VERSUS HOST DISEASE [None]
  - HEADACHE [None]
  - HEPATIC ENZYME INCREASED [None]
  - INTRACARDIAC THROMBUS [None]
  - IRON OVERLOAD [None]
  - MAJOR DEPRESSION [None]
  - MEDICAL DEVICE COMPLICATION [None]
  - NAUSEA [None]
  - OXYGEN SATURATION DECREASED [None]
  - PAIN [None]
  - PLATELET COUNT DECREASED [None]
  - PULMONARY SEQUESTRATION [None]
  - PYREXIA [None]
  - RETINAL HAEMORRHAGE [None]
  - SINUSITIS [None]
  - SPLENOMEGALY [None]
  - STOMATITIS [None]
  - TACHYCARDIA [None]
  - THROMBOSIS [None]
  - UPPER RESPIRATORY TRACT INFECTION [None]
  - VISUAL IMPAIRMENT [None]
  - VOMITING [None]
